FAERS Safety Report 21789560 (Version 1)
Quarter: 2022Q4

REPORT INFORMATION
  Report Type: Spontaneous
  Country: FR (occurrence: FR)
  Receive Date: 20221228
  Receipt Date: 20221228
  Transmission Date: 20230113
  Serious: Yes (Other)
  Sender: FDA-Public Use
  Company Number: FR-PFIZER INC-202201391281

PATIENT
  Age: 89 Year
  Sex: Female

DRUGS (1)
  1. PAXLOVID [Suspect]
     Active Substance: NIRMATRELVIR\RITONAVIR
     Indication: COVID-19 treatment
     Dosage: UNK
     Dates: start: 2022

REACTIONS (8)
  - Hepatic fibrosis [Unknown]
  - Abdominal pain upper [Unknown]
  - Functional gastrointestinal disorder [Unknown]
  - Gamma-glutamyltransferase decreased [Unknown]
  - Decreased appetite [Unknown]
  - Weight decreased [Unknown]
  - Pollakiuria [Unknown]
  - Chromaturia [Unknown]

NARRATIVE: CASE EVENT DATE: 20220101
